FAERS Safety Report 15622957 (Version 2)
Quarter: 2018Q4

REPORT INFORMATION
  Report Type: Report from Study
  Country: US (occurrence: US)
  Receive Date: 20181115
  Receipt Date: 20181205
  Transmission Date: 20190205
  Serious: Yes (Hospitalization, Other)
  Sender: FDA-Public Use
  Company Number: US-GILEAD-2018-0374277

PATIENT
  Age: 36 Year
  Sex: Male
  Weight: 72.7 kg

DRUGS (12)
  1. PROAIR HFA [Concomitant]
     Active Substance: ALBUTEROL SULFATE
  2. FLONASE [Concomitant]
     Active Substance: FLUTICASONE PROPIONATE
  3. AZTREONAM LYSINE [Suspect]
     Active Substance: AZTREONAM LYSINE
     Indication: CYSTIC FIBROSIS
     Dosage: 75 MG
     Route: 055
     Dates: start: 201802
  4. PROVENTIL HFA [SALBUTAMOL SULFATE] [Concomitant]
  5. VITAMIN D3 [Concomitant]
     Active Substance: CHOLECALCIFEROL
  6. ZITHROMAX [Concomitant]
     Active Substance: AZITHROMYCIN DIHYDRATE
  7. AQUADEKS PEDIATRIC LIQUID [Concomitant]
     Active Substance: MINERALS\VITAMINS
  8. TOBRAMYCIN. [Concomitant]
     Active Substance: TOBRAMYCIN
  9. VENTOLIN [Concomitant]
     Active Substance: ALBUTEROL SULFATE
  10. PULMOZYME [Concomitant]
     Active Substance: DORNASE ALFA
  11. CREON [Concomitant]
     Active Substance: PANCRELIPASE AMYLASE\PANCRELIPASE LIPASE\PANCRELIPASE PROTEASE
  12. SODIUM CHLORIDE. [Concomitant]
     Active Substance: SODIUM CHLORIDE

REACTIONS (2)
  - Central venous catheterisation [Recovering/Resolving]
  - Cystic fibrosis [Recovered/Resolved]

NARRATIVE: CASE EVENT DATE: 20181105
